FAERS Safety Report 20148131 (Version 1)
Quarter: 2021Q4

REPORT INFORMATION
  Report Type: Spontaneous
  Country: SE (occurrence: SE)
  Receive Date: 20211204
  Receipt Date: 20211204
  Transmission Date: 20220303
  Serious: Yes (Hospitalization, Other)
  Sender: FDA-Public Use
  Company Number: SE-CELLTRION INC.-2021SE016143

PATIENT

DRUGS (12)
  1. RITUXIMAB [Suspect]
     Active Substance: RITUXIMAB
     Indication: Follicular lymphoma
     Dosage: UNK
     Route: 065
     Dates: start: 2005
  2. RITUXIMAB [Suspect]
     Active Substance: RITUXIMAB
     Dosage: UNK
     Route: 065
     Dates: start: 202008, end: 202011
  3. CLOXACILLIN [Concomitant]
     Active Substance: CLOXACILLIN
  4. CLINDAMYCIN [Concomitant]
     Active Substance: CLINDAMYCIN
  5. FLUCLOXACILLIN [Concomitant]
     Active Substance: FLUCLOXACILLIN
  6. TINZAPARIN [Concomitant]
     Active Substance: TINZAPARIN
  7. APIXABAN [Concomitant]
     Active Substance: APIXABAN
     Dosage: 5 MG, 0.5 DAY
     Route: 048
  8. CIPROFLOXACIN [Concomitant]
     Active Substance: CIPROFLOXACIN
  9. CEFOTAXIME [Concomitant]
     Active Substance: CEFOTAXIME SODIUM
     Route: 042
  10. SULFAMETHOXAZOLE\TRIMETHOPRIM [Concomitant]
     Active Substance: SULFAMETHOXAZOLE\TRIMETHOPRIM
  11. PIPERACILLIN SODIUM\TAZOBACTAM SODIUM [Concomitant]
     Active Substance: PIPERACILLIN SODIUM\TAZOBACTAM SODIUM
  12. BENDAMUSTINE [Concomitant]
     Active Substance: BENDAMUSTINE
     Indication: Follicular lymphoma
     Dosage: UNK
     Route: 065
     Dates: start: 202008, end: 202011

REACTIONS (4)
  - Thrombosis [Unknown]
  - Bacterial infection [Unknown]
  - Zoonosis [Unknown]
  - Hypogammaglobulinaemia [Unknown]
